FAERS Safety Report 9269873 (Version 6)
Quarter: 2013Q3

REPORT INFORMATION
  Report Type: Report from Study
  Country: US (occurrence: US)
  Receive Date: 20130503
  Receipt Date: 20130918
  Transmission Date: 20140515
  Serious: Yes (Hospitalization, Other)
  Sender: FDA-Public Use
  Company Number: US-ROCHE-1217900

PATIENT
  Age: 77 Year
  Sex: Female
  Weight: 76.82 kg

DRUGS (10)
  1. TRASTUZUMAB [Suspect]
     Indication: HER-2 POSITIVE BREAST CANCER
     Dosage: LOADING DOSE
     Route: 042
     Dates: start: 20130214, end: 20130214
  2. TRASTUZUMAB [Suspect]
     Dosage: LAST DOSE PRIOR TO SAE: 18 APR 2013.  LAST DOSE PRIOR TO HEART FAILURE: 16/MAY/2013
     Route: 042
     Dates: start: 20130307, end: 20130520
  3. CARBOPLATIN [Suspect]
     Indication: HER-2 POSITIVE BREAST CANCER
     Dosage: LAST DOSE WAS ON 18/APR/2013
     Route: 042
     Dates: start: 20130214, end: 20130510
  4. DOCETAXEL [Suspect]
     Indication: HER-2 POSITIVE BREAST CANCER
     Dosage: LAST DOSE WAS ON 18/APR/2013
     Route: 042
     Dates: start: 20130214, end: 20130510
  5. ISRADIPINE [Concomitant]
     Route: 065
     Dates: start: 2010
  6. LEVOTHYROXINE [Concomitant]
     Route: 065
     Dates: start: 2010
  7. LISINOPRIL [Concomitant]
     Route: 065
     Dates: start: 2010
  8. SIMVASTATIN [Concomitant]
     Route: 065
     Dates: start: 2010
  9. TYLENOL [Concomitant]
     Route: 065
     Dates: start: 2010
  10. PERTUZUMAB [Suspect]
     Indication: HER-2 POSITIVE BREAST CANCER
     Dosage: LAST DOSE PRIOR TO SAE: 19 APR 2013
     Route: 042
     Dates: start: 20130213

REACTIONS (2)
  - Dehydration [Recovering/Resolving]
  - Cardiac failure [Unknown]
